FAERS Safety Report 8582939-9 (Version None)
Quarter: 2012Q3

REPORT INFORMATION
  Report Type: 
  Country: None (occurrence: None)
  Receive Date: 20120809
  Receipt Date: 20120727
  Transmission Date: 20120928
  Serious: No
  Sender: FDA-Public Use
  Company Number: US-ASTRAZENECA-2012SE53933

PATIENT
  Age: 61 Year
  Sex: Male
  Weight: 81.6 kg

DRUGS (24)
  1. CALCIUM 600 [Concomitant]
     Dosage: 1200 MG, AT BEDTIME
     Route: 048
     Dates: start: 20120410
  2. AMBIEN [Concomitant]
     Dosage: 5 MG, 1 TAB AT EVERY BEDTIME AS NEEDED
     Route: 048
     Dates: start: 20120525
  3. SALSALATE [Concomitant]
     Route: 048
     Dates: start: 20120523
  4. CLARITIN [Concomitant]
     Route: 048
     Dates: start: 20120106
  5. SPIRIVA WITH HANDIHALER [Concomitant]
     Dosage: 18 MCG 1 CAPSULE BY INHALATION EVERY DAY
     Route: 055
     Dates: start: 20120125
  6. PREDNISONE TAB [Concomitant]
     Dosage: 30MG QDAY FOR 4 DAYS
     Route: 048
  7. PROVENTIL-HFA [Concomitant]
     Dosage: 90MCG, 2 PUFFS, EVERY 4-6 HOUS AS NEEDED
     Dates: start: 20120712
  8. PREDNISONE TAB [Concomitant]
     Dosage: 10MG QDAY FOR 4 DAYS
     Route: 048
  9. NITROGLYCERIN [Concomitant]
     Dosage: 0.4MG, 1 TABLET, AT THE FIRST SIGN OF ATTACK
     Route: 060
     Dates: start: 20120410
  10. POTASSIUM [Concomitant]
     Route: 048
     Dates: start: 20120410
  11. MUCINEX [Concomitant]
     Dosage: 600 MG, 1 TABLET EVRY 6 HOURS AS NEEDED
     Route: 048
     Dates: start: 20120410
  12. VOLTAREN [Concomitant]
     Dosage: 1 PERCENT, 2 G, 4 TIMES EVERY DAY
     Route: 061
     Dates: start: 20120524
  13. VITAMIN B-100 COMPLEX [Concomitant]
     Route: 048
     Dates: start: 20120410
  14. SYMBICORT [Suspect]
     Dosage: 160MCG-4.5MCG/ACTUATION HFA, 2 PUFFS 2 TIMES EVERY DAY IN THE MORNING AND EVENING
     Route: 055
     Dates: start: 20120509
  15. PREDNISONE TAB [Concomitant]
     Dosage: 40 MG QDAY FOR 4 DAY
     Route: 048
     Dates: start: 20120712
  16. PREDNISONE TAB [Concomitant]
     Dosage: 5MG QDAY FOR 4 DAYS
     Route: 048
  17. NYSTATIN [Concomitant]
     Dosage: 100000 UNIT/ML, 5 MILLILITER 4 TIMES EVERY DAY
     Route: 048
     Dates: start: 20120525
  18. NITROGLYCERIN [Concomitant]
     Dosage: 0.4MG, 1 TABLET, AT THE FIRST SIGN OF ATTACK, MAY REPEAT EVERY 5 MIN UNTIL RELIEF
     Route: 060
  19. MAGNESIUM [Concomitant]
     Route: 048
     Dates: start: 20120410
  20. FISH OIL [Concomitant]
     Dosage: 1200MG-144MG-216MG CAPSULE, 1200 MG AT BEDTIME
     Dates: start: 20120410
  21. PREDNISONE TAB [Concomitant]
     Dosage: 20MG QDAY FOR 4 DAYS
     Route: 048
  22. DME SUPPLIES CPAP WITH OXYGEN [Concomitant]
     Dosage: OXYGEN 3-4 LITERS AT NIGHT, CPAP W/02 AT HS
  23. ASCORBIC ACID [Concomitant]
     Route: 048
     Dates: start: 20120410
  24. ASPIRIN [Concomitant]
     Route: 048
     Dates: start: 20120106

REACTIONS (11)
  - RHEUMATOID ARTHRITIS [None]
  - COUGH [None]
  - ARTHRALGIA [None]
  - CHRONIC OBSTRUCTIVE PULMONARY DISEASE [None]
  - DYSPNOEA [None]
  - MUSCULOSKELETAL PAIN [None]
  - BACK PAIN [None]
  - ANXIETY [None]
  - FATIGUE [None]
  - CHILLS [None]
  - WHEEZING [None]
